FAERS Safety Report 12761581 (Version 1)
Quarter: 2016Q3

REPORT INFORMATION
  Report Type: Report from Study
  Country: US (occurrence: US)
  Receive Date: 20160920
  Receipt Date: 20160920
  Transmission Date: 20161109
  Serious: Yes (Hospitalization, Other)
  Sender: FDA-Public Use
  Company Number: PHEH2014US018465

PATIENT
  Age: 38 Year
  Sex: Male
  Weight: 51.38 kg

DRUGS (1)
  1. TASIGNA [Suspect]
     Active Substance: NILOTINIB
     Indication: ACUTE MYELOID LEUKAEMIA
     Dosage: 150 MG, BID
     Route: 048
     Dates: start: 20150105

REACTIONS (4)
  - Bradycardia [Unknown]
  - Gastrointestinal disorder [Unknown]
  - Cardiac arrest [Unknown]
  - Dehydration [Unknown]

NARRATIVE: CASE EVENT DATE: 20160531
